FAERS Safety Report 23090438 (Version 1)
Quarter: 2023Q4

REPORT INFORMATION
  Report Type: Spontaneous
  Country: US (occurrence: US)
  Receive Date: 20231020
  Receipt Date: 20231020
  Transmission Date: 20240110
  Serious: Yes (Life-Threatening, Hospitalization, Other)
  Sender: FDA-Public Use
  Company Number: US-MLMSERVICE-20231004-4583174-1

PATIENT
  Age: 59 Year
  Sex: Male

DRUGS (8)
  1. LISINOPRIL [Suspect]
     Active Substance: LISINOPRIL
     Indication: Product used for unknown indication
     Dosage: UNKNOWN AMOUNT OF PILLS
  2. LORAZEPAM [Concomitant]
     Active Substance: LORAZEPAM
  3. MIRTAZAPINE [Concomitant]
     Active Substance: MIRTAZAPINE
  4. DIPHENHYDRAMINE [Concomitant]
     Active Substance: DIPHENHYDRAMINE
  5. GABAPENTIN [Concomitant]
     Active Substance: GABAPENTIN
  6. METOPROLOL [Concomitant]
     Active Substance: METOPROLOL
  7. AMLODIPINE BESYLATE [Concomitant]
     Active Substance: AMLODIPINE BESYLATE
  8. LISINOPRIL [Suspect]
     Active Substance: LISINOPRIL
     Indication: Product used for unknown indication
     Dosage: HOME MEDICATION

REACTIONS (5)
  - Agitation [Recovering/Resolving]
  - Stridor [Recovering/Resolving]
  - Hypoxia [Recovering/Resolving]
  - Intentional overdose [Recovering/Resolving]
  - Distributive shock [Recovering/Resolving]
